FAERS Safety Report 6193856-6 (Version None)
Quarter: 2009Q2

REPORT INFORMATION
  Report Type: 
  Country: None (occurrence: None)
  Receive Date: 20090518
  Receipt Date: 20090504
  Transmission Date: 20091009
  Serious: Yes (Hospitalization, Other)
  Sender: FDA-Public Use
  Company Number: US-PFIZER INC-2009211655

PATIENT
  Sex: Female
  Weight: 80.726 kg

DRUGS (1)
  1. CHANTIX [Suspect]
     Indication: SMOKING CESSATION THERAPY
     Dosage: UNK
     Dates: start: 20080201

REACTIONS (7)
  - ABDOMINAL DISTENSION [None]
  - APPENDIX DISORDER [None]
  - ENZYME ABNORMALITY [None]
  - GALLBLADDER DISORDER [None]
  - MUSCLE SPASMS [None]
  - NAUSEA [None]
  - SWELLING [None]
